FAERS Safety Report 23085101 (Version 5)
Quarter: 2024Q2

REPORT INFORMATION
  Report Type: Spontaneous
  Country: US (occurrence: US)
  Receive Date: 20231019
  Receipt Date: 20240403
  Transmission Date: 20240716
  Serious: Yes (Hospitalization, Other)
  Sender: FDA-Public Use
  Company Number: US-BRISTOL-MYERS SQUIBB COMPANY-2023-148178

PATIENT
  Age: 81 Year
  Sex: Male

DRUGS (3)
  1. POMALYST [Suspect]
     Active Substance: POMALIDOMIDE
     Indication: Plasma cell myeloma
     Route: 048
  2. POMALYST [Suspect]
     Active Substance: POMALIDOMIDE
     Route: 048
  3. POMALYST [Suspect]
     Active Substance: POMALIDOMIDE
     Dosage: 21 DAYS ON AND 7 DAYS OFF/QD FOR 21 DAYS
     Route: 048

REACTIONS (5)
  - White blood cell count decreased [Unknown]
  - Pyrexia [Unknown]
  - Drug ineffective [Unknown]
  - Cervical vertebral fracture [Unknown]
  - Fall [Unknown]

NARRATIVE: CASE EVENT DATE: 20240101
